FAERS Safety Report 18138302 (Version 1)
Quarter: 2020Q3

REPORT INFORMATION
  Report Type: Spontaneous
  Country: US (occurrence: US)
  Receive Date: 20200812
  Receipt Date: 20200812
  Transmission Date: 20201103
  Serious: Yes (Other)
  Sender: FDA-Public Use
  Company Number: US-CIPLA LTD.-2020US05355

PATIENT

DRUGS (9)
  1. RITUXIMAB. [Suspect]
     Active Substance: RITUXIMAB
     Indication: AUTOIMMUNE DISORDER
     Dosage: UNK
     Route: 065
  2. RITUXIMAB. [Suspect]
     Active Substance: RITUXIMAB
     Indication: VASCULITIS
  3. BELIMUMAB [Suspect]
     Active Substance: BELIMUMAB
     Indication: AUTOIMMUNE DISORDER
     Dosage: UNK
     Route: 065
  4. BELIMUMAB [Suspect]
     Active Substance: BELIMUMAB
     Indication: VASCULITIS
  5. AZATHIOPRINE. [Suspect]
     Active Substance: AZATHIOPRINE
     Indication: AUTOIMMUNE DISORDER
     Dosage: UNK
     Route: 065
  6. CYCLOPHOSPHAMIDE. [Suspect]
     Active Substance: CYCLOPHOSPHAMIDE
     Indication: AUTOIMMUNE DISORDER
  7. AZATHIOPRINE. [Suspect]
     Active Substance: AZATHIOPRINE
     Indication: VASCULITIS
  8. IMMUNOGLOBULINS NOS [Concomitant]
     Active Substance: IMMUNE GLOBULIN NOS
     Indication: IMMUNODEFICIENCY COMMON VARIABLE
     Dosage: UNK
     Route: 065
  9. CYCLOPHOSPHAMIDE. [Suspect]
     Active Substance: CYCLOPHOSPHAMIDE
     Indication: VASCULITIS
     Dosage: UNK
     Route: 065

REACTIONS (5)
  - Condition aggravated [Unknown]
  - Sinusitis [Unknown]
  - Pneumonia [Unknown]
  - Neutropenia [Unknown]
  - Skin infection [Unknown]
